FAERS Safety Report 6016914-5 (Version None)
Quarter: 2008Q4

REPORT INFORMATION
  Report Type: 
  Country: None (occurrence: None)
  Receive Date: 20081219
  Receipt Date: 20081212
  Transmission Date: 20090506
  Serious: Yes (Disabling)
  Sender: FDA-Public Use
  Company Number: 2008JP005394

PATIENT
  Age: 14 Year
  Sex: Male
  Weight: 40 kg

DRUGS (13)
  1. PROGRAF [Suspect]
     Indication: CORD BLOOD TRANSPLANT THERAPY
     Dosage: IV DRIP
     Route: 041
  2. PROGRAF [Suspect]
     Indication: CORD BLOOD TRANSPLANT THERAPY
  3. IMATINIB MESYLATE [Suspect]
     Dosage: 400 MG, IV NOS
     Route: 042
     Dates: start: 20060601
  4. METHOTREXATE [Concomitant]
  5. FLUDARABINE PHOSPHATE [Concomitant]
  6. CYCLOPHOSPHAMIDE [Concomitant]
  7. PREDNISOLONE [Concomitant]
  8. IMATINIB (IMATINIB) PER ORAL NOS [Concomitant]
  9. ONCOVIN (VINCRISTINE SULFATE) FORMULATION UNKNOWN [Concomitant]
  10. DAUNORUBICIN (DAUNORUBICIN) FORMULATION UNKNOWN [Concomitant]
  11. L-ASPARAGINASE (ASPARAGINASE) FORMULATION UNKNOWN [Concomitant]
  12. ARA-C (CYTARABINE) INJECTION [Concomitant]
  13. CYCLOPHOSPHAMIDE [Concomitant]

REACTIONS (6)
  - CYTOMEGALOVIRUS INFECTION [None]
  - GLOMERULOSCLEROSIS [None]
  - GRAFT VERSUS HOST DISEASE [None]
  - KIDNEY FIBROSIS [None]
  - RENAL FAILURE CHRONIC [None]
  - VIRAL HAEMORRHAGIC CYSTITIS [None]
